FAERS Safety Report 10778085 (Version 1)
Quarter: 2015Q1

REPORT INFORMATION
  Report Type: Report from Study
  Country: US (occurrence: US)
  Receive Date: 20150209
  Receipt Date: 20150209
  Transmission Date: 20150721
  Serious: Yes (Hospitalization)
  Sender: FDA-Public Use
  Company Number: US-SA-2015SA013835

PATIENT
  Age: 66 Year
  Sex: Male
  Weight: 73.1 kg

DRUGS (2)
  1. PLERIXAFOR [Suspect]
     Active Substance: PLERIXAFOR
     Indication: PLASMA CELL MYELOMA
     Dosage: DAY 1-3,6,10, 13
     Route: 042
     Dates: start: 20141222, end: 20150128
  2. TRUVADA [Concomitant]
     Active Substance: EMTRICITABINE\TENOFOVIR DISOPROXIL FUMARATE

REACTIONS (1)
  - Acute kidney injury [Not Recovered/Not Resolved]

NARRATIVE: CASE EVENT DATE: 20150131
